FAERS Safety Report 24414090 (Version 1)
Quarter: 2024Q4

REPORT INFORMATION
  Report Type: Spontaneous
  Country: CA (occurrence: CA)
  Receive Date: 20241008
  Receipt Date: 20241008
  Transmission Date: 20250114
  Serious: Yes (Other)
  Sender: AMGEN
  Company Number: CA-AMGEN-CANSP2024196465

PATIENT
  Sex: Female

DRUGS (2)
  1. BEVACIZUMAB [Suspect]
     Active Substance: BEVACIZUMAB
     Indication: Ovarian cancer
     Dosage: 7.5 MILLIGRAM/KILOGRAM, Q3WK
     Route: 065
  2. NIRAPARIB [Concomitant]
     Active Substance: NIRAPARIB
     Dosage: UNK
     Route: 065

REACTIONS (1)
  - Anaemia [Unknown]
